FAERS Safety Report 4450639-2 (Version None)
Quarter: 2004Q3

REPORT INFORMATION
  Report Type: 
  Country: None (occurrence: None)
  Receive Date: 20040914
  Receipt Date: 20040831
  Transmission Date: 20050211
  Serious: Yes (Disabling)
  Sender: FDA-Public Use
  Company Number: 2004-BP-06776BP

PATIENT
  Age: 40 Year
  Sex: Male
  Weight: 95.45 kg

DRUGS (6)
  1. SPIRIVA [Suspect]
     Indication: ASTHMA
     Dosage: NR (18 MCG), IH
     Route: 055
     Dates: end: 20040712
  2. ADVAIR (SERETIDE MITE) [Concomitant]
  3. SINGULAIR [Concomitant]
  4. ALLEGRA [Concomitant]
  5. COMBIVENT [Concomitant]
  6. PREVACID [Concomitant]

REACTIONS (3)
  - ARTHRALGIA [None]
  - JOINT LOCK [None]
  - MUSCLE CRAMP [None]
